FAERS Safety Report 10158387 (Version 1)
Quarter: 2014Q2

REPORT INFORMATION
  Report Type: Spontaneous
  Country: IN (occurrence: IN)
  Receive Date: 20140507
  Receipt Date: 20140507
  Transmission Date: 20141212
  Serious: Yes (Death)
  Sender: FDA-Public Use
  Company Number: IN-009507513-1405IND002117

PATIENT
  Age: 75 Year
  Sex: Male
  Weight: 44 kg

DRUGS (1)
  1. JANUMET [Suspect]
     Indication: DIABETES MELLITUS
     Dosage: 2 DF, 2
     Route: 048
     Dates: start: 20091211, end: 20140422

REACTIONS (1)
  - Jaundice [Fatal]
